FAERS Safety Report 6292438-5 (Version None)
Quarter: 2009Q3

REPORT INFORMATION
  Report Type: 
  Country: None (occurrence: None)
  Receive Date: 20090730
  Receipt Date: 20090730
  Transmission Date: 20100115
  Serious: No
  Sender: FDA-Public Use
  Company Number: None

PATIENT
  Sex: Female

DRUGS (3)
  1. ABRAXANE [Suspect]
     Indication: BREAST CANCER
     Dosage: 260MG/M2 EVERY 21 DAYS IV
     Route: 042
     Dates: start: 20081219, end: 20090220
  2. CHANTIX [Concomitant]
  3. VALTREX [Concomitant]

REACTIONS (2)
  - DRY EYE [None]
  - VISION BLURRED [None]
